FAERS Safety Report 18236493 (Version 1)
Quarter: 2020Q3

REPORT INFORMATION
  Report Type: Report from Study
  Country: None (occurrence: US)
  Receive Date: 20200907
  Receipt Date: 20200907
  Transmission Date: 20201103
  Serious: Yes (Hospitalization)
  Sender: FDA-Public Use
  Company Number: US-ABBVIE-20K-163-3443301-00

PATIENT
  Age: 56 Year
  Sex: Female

DRUGS (2)
  1. HUMIRA [Suspect]
     Active Substance: ADALIMUMAB
     Indication: COLITIS ULCERATIVE
     Route: 058
     Dates: start: 202006
  2. HUMIRA [Suspect]
     Active Substance: ADALIMUMAB
     Indication: COLITIS ULCERATIVE
     Route: 058
     Dates: start: 20200602, end: 20200602

REACTIONS (5)
  - Pulmonary embolism [Unknown]
  - Asthenia [Unknown]
  - Pneumonia [Unknown]
  - Deep vein thrombosis [Unknown]
  - Pulmonary venous thrombosis [Recovering/Resolving]

NARRATIVE: CASE EVENT DATE: 202006
